FAERS Safety Report 5588404-5 (Version None)
Quarter: 2008Q1

REPORT INFORMATION
  Report Type: 
  Country: None (occurrence: None)
  Receive Date: 20080111
  Receipt Date: 20071114
  Transmission Date: 20080703
  Serious: Yes (Other)
  Sender: FDA-Public Use
  Company Number: A0694497A

PATIENT
  Age: 59 Year
  Sex: Female

DRUGS (8)
  1. TYKERB [Suspect]
     Indication: BREAST CANCER
     Dosage: 1250MG PER DAY
     Route: 048
     Dates: start: 20071101
  2. XELODA [Concomitant]
  3. MS CONTIN [Concomitant]
  4. EFFEXOR [Concomitant]
  5. ATENOLOL [Concomitant]
  6. POTASSIUM [Concomitant]
  7. PHENERGAN HCL [Concomitant]
  8. ZOFRAN [Concomitant]

REACTIONS (1)
  - ANOREXIA [None]
